FAERS Safety Report 8274383 (Version 2)
Quarter: 2012Q4

REPORT INFORMATION
  Report Type: 
  Country: GB (occurrence: GB)
  Receive Date: 20111205
  Receipt Date: 20120905
  Transmission Date: 20130627
  Serious: Yes (Death, Other)
  Sender: FDA-Public Use
  Company Number: GB-RANBAXY-2011R1-50789

PATIENT
  Age: 38 Year
  Sex: Female
  Weight: 42 kg

DRUGS (13)
  1. FLUOXETINE [Suspect]
     Indication: PRODUCT USED FOR UNKNOWN INDICATION
     Dosage: 20 mg, qd
     Route: 065
     Dates: start: 20101018, end: 20110831
  2. TOPAMAX [Suspect]
     Indication: EPILEPSY
     Dosage: UNK
     Route: 048
     Dates: start: 20070703
  3. TOPAMAX [Suspect]
     Dosage: 50 mg, qd
     Route: 048
     Dates: start: 20110830, end: 20110830
  4. TOPAMAX [Suspect]
     Indication: EPILEPSY
     Dosage: 50 mg, bid
     Route: 048
     Dates: start: 20100915, end: 20100915
  5. TOPAMAX [Suspect]
     Dosage: 150mg, 1 days (50mg twice a day and 25mg twice a day)
     Route: 048
     Dates: start: 20091130, end: 20100623
  6. TOPAMAX [Suspect]
     Dosage: 150mg, 1 days (50mg twice a day and 25mg twice a day)
     Route: 048
     Dates: start: 20091130, end: 20100623
  7. TOPAMAX [Suspect]
     Indication: EPILEPSY
     Dosage: 100 mg, bid
     Route: 048
     Dates: start: 20101025
  8. FOLIC ACID [Concomitant]
     Indication: PRODUCT USED FOR UNKNOWN INDICATION
     Dosage: 5 mg, qd
     Route: 065
     Dates: start: 20091130
  9. KEPPRA [Concomitant]
     Indication: PRODUCT USED FOR UNKNOWN INDICATION
     Dosage: 250 mg, qd
     Route: 065
     Dates: start: 20110727
  10. KEPPRA [Concomitant]
     Dosage: 250 mg, bid
     Route: 065
     Dates: start: 20110831
  11. RIVOTRIL [Concomitant]
     Indication: PRODUCT USED FOR UNKNOWN INDICATION
     Dosage: 2000 ug, qd
     Route: 065
     Dates: start: 20100915
  12. RIVOTRIL [Concomitant]
     Dosage: 1000 ug, bid
     Route: 065
     Dates: start: 20091130
  13. CLONAZEPAM [Concomitant]
     Indication: PRODUCT USED FOR UNKNOWN INDICATION
     Dosage: UNK
     Route: 065

REACTIONS (17)
  - Depression [Unknown]
  - Diarrhoea [Unknown]
  - Paraesthesia [Unknown]
  - Feeling abnormal [Recovered/Resolved]
  - Feeling abnormal [Unknown]
  - Irritable bowel syndrome [Unknown]
  - Mood swings [Unknown]
  - Palpitations [Unknown]
  - Somnolence [Unknown]
  - Abdominal pain upper [Unknown]
  - Tooth loss [Unknown]
  - Sensitivity of teeth [Unknown]
  - Weight decreased [Unknown]
  - Decreased appetite [Unknown]
  - Breath odour [Unknown]
  - Dysgeusia [Unknown]
  - Emotional poverty [Unknown]
